FAERS Safety Report 15173347 (Version 1)
Quarter: 2018Q3

REPORT INFORMATION
  Report Type: Report from Study
  Country: NL (occurrence: NL)
  Receive Date: 20180720
  Receipt Date: 20180720
  Transmission Date: 20181010
  Serious: Yes (Other)
  Sender: FDA-Public Use
  Company Number: NL-MYLANLABS-2018M1053474

PATIENT
  Age: 14 Year
  Sex: Female

DRUGS (5)
  1. HALOPERIDOL. [Suspect]
     Active Substance: HALOPERIDOL
     Dosage: 0.054 TO 0.085 MG/KG/DAY ON DAY 7 TO DAY 18
     Route: 042
  2. HALOPERIDOL. [Suspect]
     Active Substance: HALOPERIDOL
     Dosage: ON DAY 2 TO DAY 4
     Route: 042
  3. HALOPERIDOL. [Suspect]
     Active Substance: HALOPERIDOL
     Dosage: ON DAY 1, IN ADDITION TO THE LOADING DOSE
     Route: 042
  4. HALOPERIDOL. [Suspect]
     Active Substance: HALOPERIDOL
     Indication: DELIRIUM
     Dosage: LOADING DOSE
     Route: 042
  5. HALOPERIDOL. [Suspect]
     Active Substance: HALOPERIDOL
     Dosage: ON DAY 5 AND DAY 6
     Route: 042

REACTIONS (3)
  - Off label use [Recovered/Resolved]
  - Overdose [Recovered/Resolved]
  - Cogwheel rigidity [Recovered/Resolved]
